FAERS Safety Report 8196825-X (Version None)
Quarter: 2012Q1

REPORT INFORMATION
  Report Type: 
  Country: None (occurrence: None)
  Receive Date: 20120309
  Receipt Date: 20120306
  Transmission Date: 20120608
  Serious: Yes (Hospitalization, Other)
  Sender: FDA-Public Use
  Company Number: US-PFIZER INC-2011279850

PATIENT
  Sex: Male
  Weight: 99 kg

DRUGS (7)
  1. PROTONIX [Concomitant]
     Dosage: UNK
     Route: 048
     Dates: start: 20111107
  2. VENLAFAXINE [Concomitant]
     Dosage: 75 MG, 2X/DAY
     Route: 048
     Dates: start: 20111107
  3. GEODON [Suspect]
     Indication: BIPOLAR DISORDER
     Dosage: 60 MG, 2X/DAY
     Route: 048
     Dates: start: 20111112, end: 20111114
  4. BYSTOLIC [Concomitant]
     Dosage: UNK
     Route: 048
     Dates: start: 20111107
  5. COGENTIN [Concomitant]
     Dosage: UNK
  6. ZITHROMAX [Concomitant]
     Dosage: UNK
     Route: 048
     Dates: start: 20111107, end: 20111112
  7. LISINOPRIL [Concomitant]
     Dosage: 20 MG, 2X/DAY
     Route: 048
     Dates: start: 20111107

REACTIONS (14)
  - BURNING SENSATION [None]
  - INSOMNIA [None]
  - DYSPNOEA [None]
  - HYPERTENSION [None]
  - CONVULSION [None]
  - SHOCK [None]
  - THROAT TIGHTNESS [None]
  - SWELLING FACE [None]
  - DYSTONIA [None]
  - HEART RATE INCREASED [None]
  - FEELING ABNORMAL [None]
  - HYPERSENSITIVITY [None]
  - SWOLLEN TONGUE [None]
  - PROTRUSION TONGUE [None]
